FAERS Safety Report 21556261 (Version 1)
Quarter: 2022Q4

REPORT INFORMATION
  Report Type: Spontaneous
  Country: NO (occurrence: NO)
  Receive Date: 20221104
  Receipt Date: 20221104
  Transmission Date: 20230113
  Serious: Yes (Life-Threatening, Hospitalization, Disabling, Other)
  Sender: FDA-Public Use
  Company Number: None

PATIENT
  Age: 58 Year
  Sex: Male

DRUGS (7)
  1. ELIQUIS [Suspect]
     Active Substance: APIXABAN
     Indication: Pulmonary embolism
     Dosage: 10 MG X2 FOR 7 DAYS, FROM 28/JUL/2022, THEN 5 MG X2 ?CONTINUED USE OF MEDICINAL PRODUCT
     Route: 065
     Dates: start: 20220728, end: 20220803
  2. ELIQUIS [Suspect]
     Active Substance: APIXABAN
     Dosage: 10 MG X2 FOR 7 DAYS, FROM 28/JUL/2022, THEN 5 MG X2 ?CONTINUED USE OF MEDICINAL PRODUCT
     Route: 065
     Dates: start: 20220804
  3. BRONKYL [Concomitant]
     Indication: Productive cough
     Dosage: WHEN NEEDED CONTINUED USE OF MEDICINAL PRODUCT
     Route: 065
  4. ATROVENT [Concomitant]
     Active Substance: IPRATROPIUM BROMIDE
     Indication: Chronic obstructive pulmonary disease
     Dosage: WHEN NEEDED CONTINUED USE OF MEDICINAL PRODUCT
     Route: 065
  5. ATROVENT [Concomitant]
     Active Substance: IPRATROPIUM BROMIDE
     Indication: Asthma
  6. SYMBICORT [Concomitant]
     Active Substance: BUDESONIDE\FORMOTEROL FUMARATE DIHYDRATE
     Indication: Asthma
     Dosage: 2 DOSES, MORNING AND EVENING CONTINUED USE OF MEDICINAL PRODUCT.?(STRENGTH BUDESONIDE: 160MICROGRAM(
     Route: 065
  7. SYMBICORT [Concomitant]
     Active Substance: BUDESONIDE\FORMOTEROL FUMARATE DIHYDRATE
     Indication: Chronic obstructive pulmonary disease

REACTIONS (3)
  - Thalamus haemorrhage [Recovering/Resolving]
  - Intentional product use issue [Unknown]
  - Hypertension [Unknown]

NARRATIVE: CASE EVENT DATE: 20220804
